FAERS Safety Report 8589895-8 (Version None)
Quarter: 2012Q3

REPORT INFORMATION
  Report Type: 
  Country: None (occurrence: None)
  Receive Date: 20120813
  Receipt Date: 20120807
  Transmission Date: 20120928
  Serious: Yes (Other)
  Sender: FDA-Public Use
  Company Number: US-AMGEN-USASP2012049599

PATIENT
  Age: 82 Year
  Sex: Female

DRUGS (12)
  1. NPLATE [Suspect]
     Indication: IDIOPATHIC THROMBOCYTOPENIC PURPURA
     Dosage: 4 MUG/KG, QWK
     Dates: start: 20111115
  2. NPLATE [Suspect]
     Dosage: 1 MUG/KG, UNK
  3. MAGNESIUM OXIDE [Concomitant]
  4. METOPROLOL [Concomitant]
  5. IMDUR [Concomitant]
  6. CAPOTEN [Concomitant]
  7. CALCIUM CARBONATE [Concomitant]
  8. VITAMIN D [Concomitant]
  9. LIPITOR [Concomitant]
  10. NEXIUM [Concomitant]
  11. BONIVA [Concomitant]
  12. ASPIRIN [Concomitant]

REACTIONS (1)
  - THERAPEUTIC RESPONSE DECREASED [None]
